FAERS Safety Report 9239159 (Version 8)
Quarter: 2014Q2

REPORT INFORMATION
  Report Type: Report from Study
  Country: CA (occurrence: CA)
  Receive Date: 20130418
  Receipt Date: 20140512
  Transmission Date: 20141212
  Serious: Yes (Hospitalization, Other)
  Sender: FDA-Public Use
  Company Number: CA-ROCHE-1214587

PATIENT
  Age: 86 Year
  Sex: Female
  Weight: 74.5 kg

DRUGS (14)
  1. ACTEMRA [Suspect]
     Indication: RHEUMATOID ARTHRITIS
     Route: 042
     Dates: start: 20121101
  2. ACTEMRA [Suspect]
     Indication: TEMPORAL ARTERITIS
     Route: 042
     Dates: start: 20130422
  3. ACTEMRA [Suspect]
     Route: 042
     Dates: start: 20140425
  4. DILTIAZEM [Concomitant]
  5. PREDNISONE [Concomitant]
  6. SERTRALINE [Concomitant]
  7. SEPTRA [Concomitant]
  8. SPIRIVA [Concomitant]
  9. ATORVASTATIN [Concomitant]
  10. RISEDRONATE [Concomitant]
  11. LASIX [Concomitant]
  12. FLOVENT [Concomitant]
  13. TYLENOL [Concomitant]
  14. ASA [Concomitant]

REACTIONS (12)
  - Fall [Recovered/Resolved]
  - Upper limb fracture [Not Recovered/Not Resolved]
  - Ankle fracture [Not Recovered/Not Resolved]
  - Pneumonia [Recovered/Resolved]
  - Local swelling [Not Recovered/Not Resolved]
  - Lung disorder [Not Recovered/Not Resolved]
  - Headache [Unknown]
  - Feeling hot [Unknown]
  - Wound [Recovered/Resolved]
  - Localised infection [Recovered/Resolved]
  - Off label use [Unknown]
  - Immunodeficiency [Unknown]
